FAERS Safety Report 4620673-8 (Version None)
Quarter: 2005Q1

REPORT INFORMATION
  Report Type: 
  Country: None (occurrence: None)
  Receive Date: 20050323
  Receipt Date: 20050309
  Transmission Date: 20050727
  Serious: No
  Sender: FDA-Public Use
  Company Number: PAGL/05/03/USA

PATIENT
  Age: 39 Year
  Sex: Female

DRUGS (5)
  1. PANGLOBULIN [Suspect]
     Indication: IMMUNODEFICIENCY COMMON VARIABLE
     Dosage: MONTHLY
     Dates: start: 20040827, end: 20041025
  2. PANGLOBULIN [Suspect]
  3. PANGLOBULIN [Suspect]
  4. PANGLOBULIN [Suspect]
  5. PANGLOBULIN [Suspect]

REACTIONS (1)
  - FALSE POSITIVE LABORATORY RESULT [None]
